FAERS Safety Report 10172537 (Version 1)
Quarter: 2014Q2

REPORT INFORMATION
  Report Type: Spontaneous
  Country: US (occurrence: US)
  Receive Date: 20140515
  Receipt Date: 20140515
  Transmission Date: 20141212
  Serious: Yes (Other)
  Sender: FDA-Public Use
  Company Number: US-AMGEN INC.-USASP2014034886

PATIENT
  Sex: Female

DRUGS (1)
  1. ENBREL [Suspect]
     Indication: PRODUCT USED FOR UNKNOWN INDICATION
     Dosage: UNK
     Route: 065

REACTIONS (7)
  - Apparent death [Unknown]
  - Myocardial infarction [Unknown]
  - Confusional state [Unknown]
  - Mobility decreased [Unknown]
  - Decreased appetite [Unknown]
  - Dehydration [Unknown]
  - Fall [Unknown]
